FAERS Safety Report 9638227 (Version 1)
Quarter: 2013Q4

REPORT INFORMATION
  Report Type: Spontaneous
  Country: US (occurrence: US)
  Receive Date: 20131022
  Receipt Date: 20131022
  Transmission Date: 20140711
  Serious: No
  Sender: FDA-Public Use
  Company Number: US-PFIZER INC-2013297758

PATIENT
  Sex: Female

DRUGS (1)
  1. ADVIL INFANTIL [Suspect]
     Dosage: UNK

REACTIONS (3)
  - Rash generalised [Not Recovered/Not Resolved]
  - Erythema [Not Recovered/Not Resolved]
  - Eye pruritus [Not Recovered/Not Resolved]
